FAERS Safety Report 9590113 (Version 1)
Quarter: 2013Q4

REPORT INFORMATION
  Report Type: Spontaneous
  Country: US (occurrence: US)
  Receive Date: 20131003
  Receipt Date: 20131003
  Transmission Date: 20140711
  Serious: No
  Sender: FDA-Public Use
  Company Number: US-AMGEN-USASP2012074891

PATIENT
  Age: 79 Year
  Sex: Female

DRUGS (13)
  1. ENBREL [Suspect]
     Indication: RHEUMATOID ARTHRITIS
     Dosage: 50 MG, QWK
     Route: 058
  2. CELEBREX [Concomitant]
     Dosage: 200 MG, UNK
  3. PREMARIN [Concomitant]
     Dosage: 0.3 MG, UNK
  4. SIMVASTATIN [Concomitant]
     Dosage: 40 MG, UNK
  5. ACTONEL [Concomitant]
     Dosage: 150 MG, UNK
  6. CALCIUM + VITAMIN D [Concomitant]
     Dosage: 600 MG, UNK
  7. METHOTREXATE [Concomitant]
     Dosage: 50 MG/2ML, UNK
  8. VITAMIN D3 [Concomitant]
     Dosage: 2000 UNIT, UNK
  9. OMEGA 3                            /01334101/ [Concomitant]
     Dosage: UNK
  10. BIOTIN [Concomitant]
     Dosage: 1000 MUG, UNK
  11. D-MANNOSE [Concomitant]
     Dosage: UNK
  12. VITAMIN C                          /00008001/ [Concomitant]
     Dosage: 1000 MG, UNK
  13. FOLIC ACID [Concomitant]
     Dosage: 5 MG, UNK

REACTIONS (4)
  - Urinary tract infection [Unknown]
  - Urticaria [Unknown]
  - Pruritus [Unknown]
  - Rash [Unknown]
